FAERS Safety Report 6114848-9 (Version None)
Quarter: 2009Q1

REPORT INFORMATION
  Report Type: 
  Country: None (occurrence: None)
  Receive Date: 20090311
  Receipt Date: 20080508
  Transmission Date: 20090719
  Serious: Yes (Hospitalization)
  Sender: FDA-Public Use
  Company Number: US200803003696

PATIENT
  Age: 71 Year
  Sex: Male
  Weight: 89.4 kg

DRUGS (3)
  1. GEMZAR [Suspect]
     Indication: PANCREATIC CARCINOMA
     Dosage: INTRAVENOUS
     Route: 042
     Dates: start: 20071220
  2. CAPECITABINE [Concomitant]
  3. DOCETAXEL [Concomitant]

REACTIONS (5)
  - DECREASED APPETITE [None]
  - DYSGEUSIA [None]
  - ORAL CANDIDIASIS [None]
  - PYREXIA [None]
  - WHITE BLOOD CELL COUNT DECREASED [None]
